FAERS Safety Report 5376250-7 (Version None)
Quarter: 2007Q3

REPORT INFORMATION
  Report Type: 
  Country: None (occurrence: None)
  Receive Date: 20070702
  Receipt Date: 20070619
  Transmission Date: 20080115
  Serious: Yes (Other)
  Sender: FDA-Public Use
  Company Number: JP-ROCHE-491606

PATIENT
  Age: 10 Year
  Sex: Male
  Weight: 41 kg

DRUGS (2)
  1. TAMIFLU [Suspect]
     Indication: INFLUENZA
     Route: 048
     Dates: start: 20060101, end: 20060101
  2. TAMIFLU [Suspect]
     Route: 048
     Dates: start: 20070218, end: 20070218

REACTIONS (1)
  - ABNORMAL BEHAVIOUR [None]
